FAERS Safety Report 8807095 (Version 2)
Quarter: 2012Q4

REPORT INFORMATION
  Report Type: 
  Country: US (occurrence: US)
  Receive Date: 20120925
  Receipt Date: 20121004
  Transmission Date: 20130627
  Serious: No
  Sender: FDA-Public Use
  Company Number: US-TEVA-357811USA

PATIENT
  Sex: Female
  Weight: 56.75 kg

DRUGS (2)
  1. NUVIGIL [Suspect]
     Indication: DEPRESSION
     Dosage: 450 Milligram Daily;
     Route: 048
  2. NUVIGIL [Suspect]
     Indication: SLEEP DISORDER

REACTIONS (3)
  - Euphoric mood [Not Recovered/Not Resolved]
  - Logorrhoea [Not Recovered/Not Resolved]
  - Off label use [Unknown]
